FAERS Safety Report 7391435-6 (Version None)
Quarter: 2011Q2

REPORT INFORMATION
  Report Type: 
  Country: None (occurrence: None)
  Receive Date: 20110404
  Receipt Date: 20110329
  Transmission Date: 20111010
  Serious: Yes (Hospitalization)
  Sender: FDA-Public Use
  Company Number: US-ALEXION-A201100438

PATIENT
  Sex: Male

DRUGS (1)
  1. SOLIRIS [Suspect]
     Indication: PAROXYSMAL NOCTURNAL HAEMOGLOBINURIA
     Dosage: UNK
     Route: 042
     Dates: start: 20110227

REACTIONS (15)
  - PAIN [None]
  - GAIT DISTURBANCE [None]
  - SPEECH DISORDER [None]
  - DECREASED APPETITE [None]
  - DIZZINESS [None]
  - ARTHROPATHY [None]
  - HYPERHIDROSIS [None]
  - STRESS [None]
  - TREMOR [None]
  - AMNESIA [None]
  - FEAR [None]
  - DIARRHOEA [None]
  - DIPLOPIA [None]
  - ABDOMINAL PAIN [None]
  - OEDEMA PERIPHERAL [None]
